FAERS Safety Report 10193209 (Version 3)
Quarter: 2016Q3

REPORT INFORMATION
  Report Type: Spontaneous
  Country: US (occurrence: US)
  Receive Date: 20140524
  Receipt Date: 20160727
  Transmission Date: 20161108
  Serious: Yes (Other)
  Sender: FDA-Public Use
  Company Number: US-SA-2013SA110951

PATIENT
  Age: 72 Year
  Sex: Female
  Weight: 71.66 kg

DRUGS (8)
  1. GABAPENTIN. [Concomitant]
     Active Substance: GABAPENTIN
     Indication: NEURALGIA
  2. GLIPIZIDE. [Concomitant]
     Active Substance: GLIPIZIDE
  3. PLAVIX [Concomitant]
     Active Substance: CLOPIDOGREL BISULFATE
  4. NADOLOL. [Concomitant]
     Active Substance: NADOLOL
     Indication: BLOOD PRESSURE MEASUREMENT
  5. LANTUS SOLOSTAR [Suspect]
     Active Substance: INSULIN GLARGINE
     Indication: TYPE 2 DIABETES MELLITUS
     Dosage: DOSE:30 UNIT(S)
     Route: 065
  6. LANTUS SOLOSTAR [Suspect]
     Active Substance: INSULIN GLARGINE
     Indication: TYPE 2 DIABETES MELLITUS
     Dosage: DOSE:55 UNIT(S)
     Route: 051
     Dates: start: 201301
  7. LANTUS SOLOSTAR [Suspect]
     Active Substance: INSULIN GLARGINE
     Indication: TYPE 2 DIABETES MELLITUS
     Dosage: DOSE:55 UNIT(S)
     Route: 051
     Dates: start: 201301
  8. SOLOSTAR [Concomitant]
     Active Substance: DEVICE

REACTIONS (16)
  - Gait disturbance [Unknown]
  - Myalgia [Unknown]
  - Tremor [Unknown]
  - Blood glucose increased [Unknown]
  - Myocardial infarction [Unknown]
  - Skin discolouration [Not Recovered/Not Resolved]
  - Cough [Unknown]
  - Rash [Unknown]
  - Burning sensation [Not Recovered/Not Resolved]
  - Pain [Unknown]
  - Insomnia [Unknown]
  - Pain in extremity [Unknown]
  - Alopecia [Unknown]
  - Pruritus [Unknown]
  - Hyperhidrosis [Unknown]
  - Dysgraphia [Unknown]

NARRATIVE: CASE EVENT DATE: 201501
